FAERS Safety Report 9669814 (Version 1)
Quarter: 2013Q4

REPORT INFORMATION
  Report Type: Spontaneous
  Country: JP (occurrence: JP)
  Receive Date: 20131105
  Receipt Date: 20131105
  Transmission Date: 20140711
  Serious: Yes (Other)
  Sender: FDA-Public Use
  Company Number: JP-PFIZER INC-2013315168

PATIENT
  Sex: Female

DRUGS (1)
  1. SOLANAX [Suspect]
     Dosage: UNK

REACTIONS (7)
  - Loss of consciousness [Unknown]
  - Dizziness [Unknown]
  - Cold sweat [Unknown]
  - Nausea [Unknown]
  - Pallor [Unknown]
  - Weight decreased [Unknown]
  - Fall [Unknown]
